FAERS Safety Report 5800664-1 (Version None)
Quarter: 2008Q3

REPORT INFORMATION
  Report Type: 
  Country: None (occurrence: None)
  Receive Date: 20080703
  Receipt Date: 20080625
  Transmission Date: 20090109
  Serious: Yes (Death, Life-Threatening)
  Sender: FDA-Public Use
  Company Number: JP-WYE-H03790608

PATIENT
  Sex: Female

DRUGS (15)
  1. ANCARON [Suspect]
     Indication: VENTRICULAR TACHYCARDIA
     Dosage: 1.25 MG/L @ 10 ML/MIN
     Route: 042
     Dates: start: 20070921, end: 20070921
  2. ANCARON [Suspect]
     Dosage: 1.5 MG/L @ 33 ML/MIN
     Route: 042
     Dates: start: 20070921, end: 20070921
  3. ANCARON [Suspect]
     Dosage: 1.5 MG/L @ 17 ML/MIN
     Route: 042
     Dates: start: 20070921, end: 20070927
  4. LASIX [Suspect]
     Indication: CARDIAC FAILURE CONGESTIVE
     Dosage: 480 MG TO 120 MG/DAY
     Route: 042
     Dates: start: 20070917, end: 20070928
  5. TAKEPRON [Suspect]
     Indication: GASTRITIS PROPHYLAXIS
     Route: 048
     Dates: start: 20070922
  6. WARFARIN SODIUM [Suspect]
     Route: 048
     Dates: start: 20070929
  7. VASOLAN [Concomitant]
     Indication: VENTRICULAR TACHYCARDIA
     Dosage: 5 MG
     Route: 042
     Dates: start: 20070921
  8. BLOPRESS [Suspect]
     Route: 048
     Dates: start: 20070918, end: 20070930
  9. ARTIST [Suspect]
     Dosage: 1.25 MG 2/3 TIMES DAILY
     Route: 048
     Dates: start: 20070918
  10. ITOROL [Suspect]
     Route: 048
     Dates: start: 20070923
  11. SIGMART [Suspect]
     Route: 042
     Dates: start: 20070917, end: 20070927
  12. SIGMART [Suspect]
     Route: 048
     Dates: start: 20070923
  13. TICLOPIDINE HCL [Concomitant]
     Route: 048
     Dates: start: 20070920
  14. ANCARON [Suspect]
     Route: 048
     Dates: start: 20070927, end: 20071107
  15. ASPIRIN [Suspect]
     Route: 048
     Dates: start: 20070920

REACTIONS (3)
  - AGRANULOCYTOSIS [None]
  - CARDIAC FAILURE CONGESTIVE [None]
  - CONDITION AGGRAVATED [None]
